FAERS Safety Report 5187428-X (Version None)
Quarter: 2006Q4

REPORT INFORMATION
  Report Type: 
  Country: None (occurrence: None)
  Receive Date: 20061220
  Receipt Date: 20060519
  Transmission Date: 20070319
  Serious: No
  Sender: FDA-Public Use
  Company Number: US-AMGEN-US180235

PATIENT
  Sex: Male

DRUGS (2)
  1. ENBREL [Suspect]
     Indication: PSORIATIC ARTHROPATHY
     Route: 058
     Dates: start: 20040524
  2. ENBREL [Suspect]
     Indication: PSORIASIS

REACTIONS (5)
  - CONDITION AGGRAVATED [None]
  - HYPOAESTHESIA [None]
  - LOWER RESPIRATORY TRACT INFECTION [None]
  - PARAESTHESIA [None]
  - PSORIASIS [None]
